FAERS Safety Report 6883773-8 (Version None)
Quarter: 2010Q3

REPORT INFORMATION
  Report Type: 
  Country: None (occurrence: None)
  Receive Date: 20100729
  Receipt Date: 20100726
  Transmission Date: 20110219
  Serious: Yes (Other)
  Sender: FDA-Public Use
  Company Number: FR-BRISTOL-MYERS SQUIBB COMPANY-15208598

PATIENT
  Age: 82 Year
  Sex: Female

DRUGS (1)
  1. HYDREA [Suspect]
     Indication: POLYCYTHAEMIA VERA
     Dosage: DF=TABS
     Route: 048
     Dates: start: 19930101

REACTIONS (1)
  - SQUAMOUS CELL CARCINOMA [None]
